FAERS Safety Report 5458177-5 (Version None)
Quarter: 2007Q3

REPORT INFORMATION
  Report Type: 
  Country: None (occurrence: None)
  Receive Date: 20070917
  Receipt Date: 20060907
  Transmission Date: 20080115
  Serious: Yes (Hospitalization)
  Sender: FDA-Public Use
  Company Number: 14740

PATIENT
  Age: 56 Year
  Sex: Female

DRUGS (3)
  1. FLUOROURACIL [Suspect]
  2. METHOTREXATE [Suspect]
  3. CYCLOPHOSPHAMIDE [Suspect]

REACTIONS (1)
  - PERIPHERAL ISCHAEMIA [None]
